FAERS Safety Report 15665906 (Version 1)
Quarter: 2018Q4

REPORT INFORMATION
  Report Type: Spontaneous
  Country: US (occurrence: US)
  Receive Date: 20181119
  Receipt Date: 20181119
  Transmission Date: 20190205
  Serious: Yes (Hospitalization)
  Sender: FDA-Public Use
  Company Number: None

PATIENT
  Sex: Female

DRUGS (1)
  1. GIARDIA LAMBILIA VIAL #1 500C [Suspect]
     Active Substance: HOMEOPATHICS
     Indication: GIARDIASIS
     Dosage: ?          OTHER STRENGTH:500C;OTHER ROUTE:UNDER TONGUE?
     Dates: start: 20180830, end: 20180830

REACTIONS (7)
  - Drug ineffective [None]
  - Dizziness [None]
  - Balance disorder [None]
  - Headache [None]
  - Vomiting [None]
  - Blood pressure increased [None]
  - Dehydration [None]

NARRATIVE: CASE EVENT DATE: 20180830
